FAERS Safety Report 11786000 (Version 1)
Quarter: 2015Q4

REPORT INFORMATION
  Report Type: Spontaneous
  Country: US (occurrence: None)
  Receive Date: 20151125
  Receipt Date: 20151125
  Transmission Date: 20160305
  Serious: Yes (Hospitalization)
  Sender: FDA-Public Use
  Company Number: None

PATIENT
  Age: 86 Year
  Sex: Male
  Weight: 83.95 kg

DRUGS (10)
  1. LOSARTAN. [Concomitant]
     Active Substance: LOSARTAN
  2. ADVIL [Suspect]
     Active Substance: IBUPROFEN
     Indication: PROSTATE CANCER
     Dates: start: 20150720, end: 20151121
  3. ENZULATAMIDE (ASTELLAS/MEDNATION) [Suspect]
     Active Substance: ENZALUTAMIDE
     Indication: OSTEOARTHRITIS
     Route: 048
     Dates: start: 20150527
  4. VITAMIN D [Concomitant]
     Active Substance: CHOLECALCIFEROL
  5. ASCORBIC ACID (VITAMIN C) [Concomitant]
     Active Substance: ASCORBIC ACID
  6. COMPAZINE [Concomitant]
     Active Substance: PROCHLORPERAZINE MALEATE
  7. AVODART [Concomitant]
     Active Substance: DUTASTERIDE
  8. PREDNISONE. [Suspect]
     Active Substance: PREDNISONE
     Indication: PROSTATE CANCER
     Dates: start: 20150720, end: 20151121
  9. IBUPROFEN (ADVIL,MOTRIN) [Concomitant]
  10. LASIX [Concomitant]
     Active Substance: FUROSEMIDE

REACTIONS (5)
  - Blood pressure decreased [None]
  - Dyspnoea [None]
  - Fatigue [None]
  - Pallor [None]
  - Faeces discoloured [None]

NARRATIVE: CASE EVENT DATE: 20151119
